FAERS Safety Report 5590365-X (Version None)
Quarter: 2008Q1

REPORT INFORMATION
  Report Type: 
  Country: None (occurrence: None)
  Receive Date: 20080114
  Receipt Date: 20080108
  Transmission Date: 20080703
  Serious: Yes (Other)
  Sender: FDA-Public Use
  Company Number: JP-ROXANE LABORATORIES, INC-2008-BP-00385RO

PATIENT
  Age: 48 Year
  Sex: Male

DRUGS (5)
  1. CYCLOPHOSPHAMIDE [Suspect]
     Indication: IMMUNOSUPPRESSION
  2. TACROLIMUS [Suspect]
     Indication: IMMUNOSUPPRESSION
  3. MIZORIBINE [Concomitant]
     Indication: IMMUNOSUPPRESSION
  4. ANTITHROMBIN III [Concomitant]
  5. PROSTAGLANDIN I 2 [Concomitant]

REACTIONS (1)
  - THROMBOTIC MICROANGIOPATHY [None]
